FAERS Safety Report 8047141-8 (Version None)
Quarter: 2012Q1

REPORT INFORMATION
  Report Type: 
  Country: None (occurrence: None)
  Receive Date: 20120116
  Receipt Date: 20120110
  Transmission Date: 20120608
  Serious: Yes (Life-Threatening, Hospitalization)
  Sender: FDA-Public Use
  Company Number: US-JNJFOC-20120103382

PATIENT
  Age: 53 Year
  Sex: Male

DRUGS (4)
  1. MUSCLE RELAXANTS (NOS) [Suspect]
     Indication: PAIN
     Route: 065
  2. TRICYCLIC ANTIDEPRESSANT [Suspect]
     Indication: PRODUCT USED FOR UNKNOWN INDICATION
     Route: 065
  3. NUCYNTA [Suspect]
     Indication: PAIN
     Route: 048
  4. MORPHINE SULFATE [Suspect]
     Indication: PAIN
     Route: 065

REACTIONS (8)
  - FALL [None]
  - HEAD INJURY [None]
  - CONVULSION [None]
  - UNRESPONSIVE TO STIMULI [None]
  - PYREXIA [None]
  - TACHYCARDIA [None]
  - TOXICITY TO VARIOUS AGENTS [None]
  - TRANSAMINASES INCREASED [None]
